FAERS Safety Report 5884043-7 (Version None)
Quarter: 2008Q3

REPORT INFORMATION
  Report Type: 
  Country: None (occurrence: None)
  Receive Date: 20080915
  Receipt Date: 20080908
  Transmission Date: 20090109
  Serious: Yes (Other)
  Sender: FDA-Public Use
  Company Number: JP-MERCK-0809USA01472

PATIENT
  Sex: Male

DRUGS (2)
  1. PEPCID [Suspect]
     Route: 042
     Dates: start: 20080701
  2. CEFAMEZIN [Suspect]
     Route: 042
     Dates: start: 20080701

REACTIONS (2)
  - HAEMOLYTIC ANAEMIA [None]
  - RHABDOMYOLYSIS [None]
